FAERS Safety Report 6195291-3 (Version None)
Quarter: 2009Q2

REPORT INFORMATION
  Report Type: 
  Country: None (occurrence: None)
  Receive Date: 20090515
  Receipt Date: 20090506
  Transmission Date: 20091009
  Serious: Yes (Other)
  Sender: FDA-Public Use
  Company Number: 2009US001508

PATIENT
  Age: 38 Year
  Sex: Male

DRUGS (5)
  1. AMBISOME [Suspect]
     Indication: PNEUMONIA FUNGAL
     Dosage: 2.5 MG/KG, UID/QD, 10 MG/KG, UID/QD, 5 MG/KG, UID/QD
  2. AZITHROMYCIN [Concomitant]
  3. CEFEPIME [Concomitant]
  4. AMIKACIN [Concomitant]
  5. GANCICLOVIR [Concomitant]

REACTIONS (1)
  - NEPHROGENIC DIABETES INSIPIDUS [None]
